FAERS Safety Report 4282535-8 (Version None)
Quarter: 2004Q1

REPORT INFORMATION
  Report Type: 
  Country: None (occurrence: None)
  Receive Date: 20040129
  Receipt Date: 20040116
  Transmission Date: 20041129
  Serious: Yes (Hospitalization, Other)
  Sender: FDA-Public Use
  Company Number: NSADSS2002032589

PATIENT
  Age: 29 Year
  Sex: Female
  Weight: 72.5755 kg

DRUGS (1)
  1. REMICADE [Suspect]
     Indication: DRUG USE FOR UNKNOWN INDICATION
     Dosage: ,1 IN 1 AS NECESSARY, INTRAVENOUS DRIP
     Route: 041

REACTIONS (4)
  - CROHN'S DISEASE [None]
  - OVARIAN DISORDER [None]
  - THROMBOPHLEBITIS SEPTIC [None]
  - VASCULITIS CEREBRAL [None]
